FAERS Safety Report 8348815-1 (Version None)
Quarter: 2012Q2

REPORT INFORMATION
  Report Type: 
  Country: None (occurrence: None)
  Receive Date: 20120508
  Receipt Date: 20120426
  Transmission Date: 20120825
  Serious: Yes (Life-Threatening, Other)
  Sender: FDA-Public Use
  Company Number: MC201200280

PATIENT
  Age: 50 Year
  Sex: Female

DRUGS (8)
  1. ANGIOMAX [Suspect]
     Indication: PERCUTANEOUS CORONARY INTERVENTION
     Dosage: 0.75 MG/KG, INTRAVENOUS; 1.75 MG/KG, HR
     Route: 042
  2. PROZAC [Concomitant]
  3. HEPARIN [Suspect]
     Dosage: 1800 IU
     Dates: start: 20120421, end: 20120422
  4. CLOPIDEGREL [Concomitant]
  5. INSULIN (INSULIN) [Concomitant]
  6. ATENOLOL [Concomitant]
  7. FAMOTIDINE [Concomitant]
  8. FENOFIBRATE [Concomitant]

REACTIONS (6)
  - THROMBOCYTOPENIA [None]
  - CORONARY ARTERY THROMBOSIS [None]
  - HEPARIN-INDUCED THROMBOCYTOPENIA [None]
  - CARDIO-RESPIRATORY ARREST [None]
  - THROMBOSIS IN DEVICE [None]
  - HAEMORRHAGE [None]
